FAERS Safety Report 21735663 (Version 1)
Quarter: 2022Q4

REPORT INFORMATION
  Report Type: Report from Study
  Country: US (occurrence: US)
  Receive Date: 20221215
  Receipt Date: 20221215
  Transmission Date: 20230113
  Serious: No
  Sender: FDA-Public Use
  Company Number: US-ABBVIE-4198025

PATIENT
  Age: 15 Year
  Sex: Female

DRUGS (1)
  1. HUMIRA [Suspect]
     Active Substance: ADALIMUMAB
     Indication: Hidradenitis
     Dosage: CITRATE FREE?FORM STRENGTH: 40
     Route: 058
     Dates: start: 20221013

REACTIONS (4)
  - Concussion [Recovering/Resolving]
  - Influenza like illness [Not Recovered/Not Resolved]
  - Head injury [Unknown]
  - Pain [Unknown]

NARRATIVE: CASE EVENT DATE: 20221101
